FAERS Safety Report 10099698 (Version 1)
Quarter: 2014Q2

REPORT INFORMATION
  Report Type: Spontaneous
  Country: US (occurrence: US)
  Receive Date: 20140423
  Receipt Date: 20140423
  Transmission Date: 20141212
  Serious: No
  Sender: FDA-Public Use
  Company Number: US-GILEAD-2013-0071419

PATIENT
  Sex: Female

DRUGS (2)
  1. LETAIRIS [Suspect]
     Indication: PRODUCT USED FOR UNKNOWN INDICATION
     Dosage: 5 MG, QD
     Dates: start: 20120321
  2. REMODULIN [Concomitant]

REACTIONS (5)
  - Pain [Unknown]
  - Chest discomfort [Unknown]
  - Stress [Unknown]
  - Cataract [Unknown]
  - Palpitations [Unknown]
